FAERS Safety Report 20453607 (Version 1)
Quarter: 2022Q1

REPORT INFORMATION
  Report Type: Spontaneous
  Country: PT (occurrence: PT)
  Receive Date: 20220210
  Receipt Date: 20220210
  Transmission Date: 20220424
  Serious: Yes (Other)
  Sender: FDA-Public Use
  Company Number: PT-GILEAD-2022-0568527

PATIENT
  Age: 28 Year
  Sex: Female

DRUGS (5)
  1. AMBRISENTAN [Suspect]
     Active Substance: AMBRISENTAN
     Indication: Pulmonary arterial hypertension
     Dosage: 10 MG ID
     Route: 065
  2. WARFARIN [Concomitant]
     Active Substance: WARFARIN
  3. SILDENAFIL [Concomitant]
     Active Substance: SILDENAFIL
  4. FUROSEMIDE [Concomitant]
     Active Substance: FUROSEMIDE
  5. EPOPROSTENOL [Concomitant]
     Active Substance: EPOPROSTENOL

REACTIONS (2)
  - Maternal exposure during pregnancy [Recovered/Resolved]
  - Off label use [Unknown]
